FAERS Safety Report 24736069 (Version 1)
Quarter: 2024Q4

REPORT INFORMATION
  Report Type: Spontaneous
  Country: JP (occurrence: JP)
  Receive Date: 20241216
  Receipt Date: 20241216
  Transmission Date: 20250114
  Serious: Yes (Death, Hospitalization, Other)
  Sender: BOEHRINGER INGELHEIM
  Company Number: JP-Merck Healthcare KGaA-9218682

PATIENT
  Age: 86 Year
  Sex: Female
  Weight: 47 kg

DRUGS (4)
  1. JARDIANCE [Suspect]
     Active Substance: EMPAGLIFLOZIN
     Indication: Product used for unknown indication
     Route: 048
  2. METGLUCO [Suspect]
     Active Substance: METFORMIN HYDROCHLORIDE
     Indication: Type 2 diabetes mellitus
     Route: 048
  3. SITAGLIPTIN PHOSPHATE [Concomitant]
     Active Substance: SITAGLIPTIN PHOSPHATE
     Indication: Product used for unknown indication
  4. VOGLIBOSE [Concomitant]
     Active Substance: VOGLIBOSE
     Indication: Product used for unknown indication

REACTIONS (8)
  - Cardiac arrest [Fatal]
  - Lactic acidosis [Fatal]
  - Cardiac failure [Unknown]
  - Renal impairment [Unknown]
  - Ketoacidosis [Unknown]
  - Shock [Unknown]
  - Hepatic function abnormal [Unknown]
  - Vomiting [Unknown]
